FAERS Safety Report 14605545 (Version 1)
Quarter: 2018Q1

REPORT INFORMATION
  Report Type: Other
  Country: US (occurrence: US)
  Receive Date: 20180306
  Receipt Date: 20180306
  Transmission Date: 20180509
  Serious: No
  Sender: FDA-Public Use
  Company Number: US-INTERCEPT-PMOCA2017001760

PATIENT

DRUGS (1)
  1. OCALIVA [Suspect]
     Active Substance: OBETICHOLIC ACID
     Indication: PRODUCT USED FOR UNKNOWN INDICATION
     Dosage: 5 MG, QD
     Route: 048
     Dates: start: 20171220

REACTIONS (8)
  - Blood cholesterol increased [Unknown]
  - Epistaxis [Unknown]
  - Contusion [Unknown]
  - Pruritus [Unknown]
  - Fatigue [Unknown]
  - Constipation [Unknown]
  - Pain in extremity [Unknown]
  - Influenza [Unknown]
